FAERS Safety Report 6075961-8 (Version None)
Quarter: 2009Q1

REPORT INFORMATION
  Report Type: 
  Country: None (occurrence: None)
  Receive Date: 20090212
  Receipt Date: 20090202
  Transmission Date: 20090719
  Serious: Yes (Other)
  Sender: FDA-Public Use
  Company Number: DE-SANOFI-SYNTHELABO-A01200901159

PATIENT
  Age: 84 Year
  Sex: Male

DRUGS (1)
  1. ISCOVER [Suspect]
     Indication: ARTERIOSCLEROSIS
     Dosage: UNK
     Route: 048
     Dates: start: 20010101

REACTIONS (1)
  - GASTROINTESTINAL ANGIODYSPLASIA HAEMORRHAGIC [None]
